FAERS Safety Report 10075635 (Version 2)
Quarter: 2014Q2

REPORT INFORMATION
  Report Type: Spontaneous
  Country: JP (occurrence: JP)
  Receive Date: 20140414
  Receipt Date: 20140430
  Transmission Date: 20141212
  Serious: No
  Sender: FDA-Public Use
  Company Number: JP-JNJFOC-20140405770

PATIENT
  Age: 68 Year
  Sex: Male

DRUGS (10)
  1. XARELTO [Suspect]
     Indication: PRODUCT USED FOR UNKNOWN INDICATION
     Route: 048
  2. CALBLOCK [Concomitant]
     Route: 048
  3. LANSOPRAZOLE [Concomitant]
     Route: 065
  4. VIBRAMYCIN [Concomitant]
     Route: 065
  5. FEBUXOSTAT [Concomitant]
     Route: 048
  6. SELARA (EPLERENONE) [Concomitant]
     Route: 048
  7. SAWACILLIN [Concomitant]
     Route: 048
  8. CALONAL [Concomitant]
     Route: 065
  9. ARTIST [Concomitant]
     Route: 048
  10. DIART [Concomitant]
     Route: 048

REACTIONS (6)
  - Neutrophil count decreased [Unknown]
  - Haematocrit decreased [Unknown]
  - Platelet count decreased [Unknown]
  - Haemoglobin decreased [Unknown]
  - Red blood cell count decreased [Unknown]
  - White blood cell count decreased [Unknown]
